FAERS Safety Report 21920259 (Version 1)
Quarter: 2023Q1

REPORT INFORMATION
  Report Type: Spontaneous
  Country: US (occurrence: US)
  Receive Date: 20230127
  Receipt Date: 20230127
  Transmission Date: 20230418
  Serious: No
  Sender: FDA-Public Use
  Company Number: US-BAYER-2023A010547

PATIENT
  Age: 59 Year
  Sex: Male

DRUGS (4)
  1. MIRALAX [Suspect]
     Active Substance: POLYETHYLENE GLYCOL 3350
     Indication: Gastrointestinal disorder
     Dosage: 1 DF, QD (;ONCE DAILY)
     Route: 048
  2. MIRALAX [Suspect]
     Active Substance: POLYETHYLENE GLYCOL 3350
     Indication: Postoperative care
  3. OXYCODONE [Concomitant]
     Active Substance: OXYCODONE
  4. PROPANE [Concomitant]
     Active Substance: PROPANE

REACTIONS (1)
  - Drug ineffective for unapproved indication [Not Recovered/Not Resolved]
